FAERS Safety Report 8556103-3 (Version None)
Quarter: 2012Q3

REPORT INFORMATION
  Report Type: 
  Country: None (occurrence: None)
  Receive Date: 20120801
  Receipt Date: 20120722
  Transmission Date: 20120928
  Serious: Yes (Hospitalization, Other)
  Sender: FDA-Public Use
  Company Number: IL-JNJFOC-20120113016

PATIENT
  Age: 60 Year
  Sex: Male

DRUGS (5)
  1. PALIPERIDONE [Suspect]
     Route: 030
  2. PALIPERIDONE [Suspect]
     Route: 030
  3. PALIPERIDONE [Suspect]
     Route: 030
  4. PALIPERIDONE [Suspect]
     Route: 030
  5. PALIPERIDONE [Suspect]
     Indication: PRODUCT USED FOR UNKNOWN INDICATION
     Route: 030

REACTIONS (5)
  - PSYCHOTIC DISORDER [None]
  - TREMOR [None]
  - RESTLESSNESS [None]
  - AKATHISIA [None]
  - MUSCULOSKELETAL STIFFNESS [None]
